FAERS Safety Report 20791298 (Version 1)
Quarter: 2022Q2

REPORT INFORMATION
  Report Type: Spontaneous
  Country: IT (occurrence: IT)
  Receive Date: 20220505
  Receipt Date: 20220505
  Transmission Date: 20220721
  Serious: Yes (Death)
  Sender: FDA-Public Use
  Company Number: IT-NOVARTISPH-NVSC2021IT074580

PATIENT

DRUGS (13)
  1. GEMCITABINE [Suspect]
     Active Substance: GEMCITABINE
     Indication: Diffuse large B-cell lymphoma stage IV
     Dosage: UNK 3RD LINE TREATMENT (R-GEMOX)
     Route: 065
  2. OXALIPLATIN [Suspect]
     Active Substance: OXALIPLATIN
     Indication: Diffuse large B-cell lymphoma stage IV
     Dosage: UNK 2ND LINE TREATMENT (R-DHAOX);3RD LINE TREATMENT (R-GEMOX)
     Route: 065
  3. DEXAMETHASONE [Suspect]
     Active Substance: DEXAMETHASONE
     Indication: Diffuse large B-cell lymphoma stage IV
     Dosage: UNK 2ND LINE TREATMENT (R-DHAOX)
     Route: 065
  4. MABTHERA [Suspect]
     Active Substance: RITUXIMAB
     Indication: Diffuse large B-cell lymphoma stage IV
     Dosage: UNK 1ST LINE TREATMENT (R-CHOP)
     Route: 065
  5. MABTHERA [Suspect]
     Active Substance: RITUXIMAB
     Dosage: UNK 2ND LINE TREATMENT (R-DHAOX)
     Route: 065
  6. MABTHERA [Suspect]
     Active Substance: RITUXIMAB
     Dosage: UNK 3RD LINE TREATMENT (R-GEMOX)
     Route: 065
  7. CYTARABINE [Suspect]
     Active Substance: CYTARABINE
     Indication: Diffuse large B-cell lymphoma stage IV
     Dosage: UNK 2ND LINE TREATMENT (R-DHAOX)
     Route: 065
  8. CYCLOPHOSPHAMIDE [Suspect]
     Active Substance: CYCLOPHOSPHAMIDE
     Indication: Diffuse large B-cell lymphoma stage IV
     Dosage: UNK 1ST LINE TREATMENT (R-CHOP)
     Route: 065
  9. DOXORUBICIN HYDROCHLORIDE [Suspect]
     Active Substance: DOXORUBICIN HYDROCHLORIDE
     Indication: Diffuse large B-cell lymphoma stage IV
     Dosage: UNK 1ST LINE TREATMENT (R-CHOP)
     Route: 065
  10. PREDNISONE [Suspect]
     Active Substance: PREDNISONE
     Indication: Diffuse large B-cell lymphoma stage IV
     Dosage: UNK 1ST LINE TREATMENT (R-CHOP)
     Route: 065
  11. VINCRISTINE SULFATE [Suspect]
     Active Substance: VINCRISTINE SULFATE
     Indication: Diffuse large B-cell lymphoma stage IV
     Dosage: UNK 1ST LINE TREATMENT (R-CHOP)
     Route: 065
  12. DACLATASVIR [Concomitant]
     Active Substance: DACLATASVIR
     Indication: Hepatitis C
     Dosage: UNK SEQ. (2ND LINE)
     Route: 065
  13. SOFOSBUVIR [Concomitant]
     Active Substance: SOFOSBUVIR
     Indication: Hepatitis C
     Dosage: UNK
     Route: 065

REACTIONS (2)
  - Diffuse large B-cell lymphoma recurrent [Fatal]
  - Disease progression [Fatal]
